FAERS Safety Report 11139404 (Version 1)
Quarter: 2015Q2

REPORT INFORMATION
  Report Type: Spontaneous
  Country: BR (occurrence: BR)
  Receive Date: 20150527
  Receipt Date: 20150527
  Transmission Date: 20150821
  Serious: Yes (Other)
  Sender: FDA-Public Use
  Company Number: BR-SA-2014SA139286

PATIENT
  Age: 28 Year
  Sex: Female
  Weight: 78 kg

DRUGS (2)
  1. CLEXANE SAFETY LOCK [Suspect]
     Active Substance: ENOXAPARIN SODIUM
     Indication: HYPERCOAGULATION
     Route: 058
     Dates: start: 201409, end: 20150326
  2. AAS INFANTIL [Concomitant]
     Active Substance: ASPIRIN
     Indication: THROMBOSIS PROPHYLAXIS
     Dosage: ALSO AFTER 40 DAYS OF DELIVERY
     Route: 048
     Dates: start: 201409

REACTIONS (8)
  - Placental disorder [Unknown]
  - Syncope [Unknown]
  - Uterine atony [Unknown]
  - Platelet count decreased [Unknown]
  - Pallor [Unknown]
  - Exposure during pregnancy [Unknown]
  - Caesarean section [Unknown]
  - Postpartum haemorrhage [Unknown]

NARRATIVE: CASE EVENT DATE: 201409
